FAERS Safety Report 5104919-8 (Version None)
Quarter: 2006Q3

REPORT INFORMATION
  Report Type: 
  Country: None (occurrence: None)
  Receive Date: 20060914
  Receipt Date: 20060906
  Transmission Date: 20061208
  Serious: Yes (Disabling)
  Sender: FDA-Public Use
  Company Number: JP-ROCHE-462527

PATIENT
  Age: 44 Year
  Sex: Male

DRUGS (3)
  1. ROCEPHIN [Suspect]
     Indication: PYREXIA
     Dosage: DRUG REPORTED AS ROCEPHIN 1G BAG.
     Route: 041
     Dates: start: 20060726, end: 20060727
  2. CIPROFLOXACIN [Suspect]
     Indication: PYREXIA
     Route: 048
     Dates: start: 20060726
  3. SULPYRINE [Suspect]
     Indication: PYREXIA
     Route: 048
     Dates: start: 20060726

REACTIONS (6)
  - ALANINE AMINOTRANSFERASE INCREASED [None]
  - BLOOD BILIRUBIN INCREASED [None]
  - DIALYSIS [None]
  - GAMMA-GLUTAMYLTRANSFERASE INCREASED [None]
  - GASTROINTESTINAL INFLAMMATION [None]
  - RENAL FAILURE ACUTE [None]
